FAERS Safety Report 5130516-4 (Version None)
Quarter: 2006Q4

REPORT INFORMATION
  Report Type: 
  Country: None (occurrence: None)
  Receive Date: 20061019
  Receipt Date: 20061017
  Transmission Date: 20070319
  Serious: Yes (Hospitalization)
  Sender: FDA-Public Use
  Company Number: FR-GLAXOSMITHKLINE-B0442724A

PATIENT
  Age: 93 Year
  Sex: Female

DRUGS (4)
  1. CLAMOXYL [Suspect]
     Indication: ERYSIPELAS
     Dosage: 1.5G THREE TIMES PER DAY
     Route: 048
     Dates: start: 20060816, end: 20060821
  2. PENICILLIN G [Suspect]
     Indication: ERYSIPELAS
     Dosage: 4MU FOUR TIMES PER DAY
     Route: 042
     Dates: start: 20060814, end: 20060819
  3. DALACINE [Suspect]
     Indication: ERYSIPELAS
     Dosage: 600MG FOUR TIMES PER DAY
     Route: 042
     Dates: start: 20060817, end: 20060821
  4. LASIX [Concomitant]
     Dosage: 40MG PER DAY
     Route: 065
     Dates: start: 20060818

REACTIONS (4)
  - RASH [None]
  - RASH ERYTHEMATOUS [None]
  - TOXIC SKIN ERUPTION [None]
  - URINARY TRACT INFECTION [None]
